FAERS Safety Report 7833275-7 (Version None)
Quarter: 2011Q4

REPORT INFORMATION
  Report Type: 
  Country: None (occurrence: None)
  Receive Date: 20111024
  Receipt Date: 20111019
  Transmission Date: 20120403
  Serious: Yes (Death)
  Sender: FDA-Public Use
  Company Number: DE-PFIZER INC-2011239547

PATIENT
  Age: 75 Year
  Sex: Male
  Weight: 97 kg

DRUGS (9)
  1. CELIPRO LICH [Concomitant]
     Dosage: 1 DF, 1X/DAY
     Dates: start: 20030101
  2. ZOMETA [Concomitant]
     Indication: METASTATIC RENAL CELL CARCINOMA
     Dosage: 4 MG, EVERY 4 WEEKS
  3. IBUPROFEN [Concomitant]
     Dosage: UNK
  4. EXFORGE [Concomitant]
     Dosage: 1 DF, 1X/DAY
     Dates: start: 20030101
  5. AMARYL [Concomitant]
     Dosage: 3 MG, 1X/DAY
     Dates: start: 19750101
  6. TEMSIROLIMUS [Suspect]
     Indication: METASTATIC RENAL CELL CARCINOMA
     Dosage: 25 MG, WEEKLY
     Route: 042
     Dates: start: 20080409, end: 20110928
  7. TAMSULOSIN [Concomitant]
     Dosage: 1 DF, 1X/DAY
     Dates: start: 20020101
  8. AVANDAMET [Concomitant]
     Dosage: 0.5 - 0 - 1
     Dates: start: 19750101
  9. FENISTIL [Concomitant]
     Indication: PREMEDICATION
     Dosage: 1 DF, 1X/DAY

REACTIONS (3)
  - CARDIAC ARREST [None]
  - CARDIAC FAILURE ACUTE [None]
  - RESPIRATORY FAILURE [None]
